FAERS Safety Report 5353058-X (Version None)
Quarter: 2007Q2

REPORT INFORMATION
  Report Type: 
  Country: None (occurrence: None)
  Receive Date: 20070611
  Receipt Date: 20070530
  Transmission Date: 20071010
  Serious: Yes (Other)
  Sender: FDA-Public Use
  Company Number: US-PFIZER INC-2007044321

PATIENT
  Sex: Male

DRUGS (1)
  1. ZYVOX [Suspect]
     Indication: BACTERIAL INFECTION

REACTIONS (3)
  - DISABILITY [None]
  - HYPOAESTHESIA [None]
  - NEUROPATHY [None]
